FAERS Safety Report 17865198 (Version 1)
Quarter: 2020Q2

REPORT INFORMATION
  Report Type: Spontaneous
  Country: US (occurrence: US)
  Receive Date: 20200605
  Receipt Date: 20200605
  Transmission Date: 20200714
  Serious: No
  Sender: FDA-Public Use
  Company Number: US-DENDREON PHARMACEUTICAL LLC-2020DEN000054

PATIENT

DRUGS (5)
  1. BENADRYL [Concomitant]
     Active Substance: DIPHENHYDRAMINE HYDROCHLORIDE
     Dosage: 50 MILLIGRAM
     Route: 048
     Dates: start: 20200214, end: 20200214
  2. TYLENOL EXTRA STRENGTH [Concomitant]
     Active Substance: ACETAMINOPHEN
     Dosage: 1000 UNK
     Route: 048
     Dates: start: 20200214, end: 20200214
  3. PROVENGE [Suspect]
     Active Substance: SIPULEUCEL-T
     Indication: PROSTATE CANCER METASTATIC
     Dosage: DOSE # 1
     Route: 042
     Dates: start: 20200214, end: 20200214
  4. PROVENGE [Suspect]
     Active Substance: SIPULEUCEL-T
     Dosage: DOSE # 2
     Route: 042
     Dates: start: 20200228, end: 20200228
  5. PEPCID AC [Concomitant]
     Active Substance: FAMOTIDINE
     Dosage: 10 MILLIGRAM
     Route: 048
     Dates: start: 20200214, end: 20200214

REACTIONS (4)
  - Pain [Recovered/Resolved]
  - Chills [Recovered/Resolved]
  - Orthostatic hypotension [Recovered/Resolved]
  - Chills [Recovered/Resolved]

NARRATIVE: CASE EVENT DATE: 20200214
